FAERS Safety Report 8789616 (Version 1)
Quarter: 2012Q4

REPORT INFORMATION
  Report Type: Spontaneous
  Country: US (occurrence: None)
  Receive Date: 20120911
  Receipt Date: 20120911
  Transmission Date: 20130627
  Serious: Yes (Hospitalization)
  Sender: FDA-Public Use
  Company Number: None

PATIENT
  Age: 50 Year
  Sex: Female
  Weight: 83.92 kg

DRUGS (2)
  1. ZOLPIDEM [Suspect]
     Indication: JET LAG
     Dosage: Single dose
     Route: 048
     Dates: start: 20120908, end: 20120912
  2. PREDNISONE [Concomitant]

REACTIONS (6)
  - Wrong drug administered [None]
  - Amnesia [None]
  - Unresponsive to stimuli [None]
  - Abnormal behaviour [None]
  - Speech disorder [None]
  - Gait disturbance [None]
